FAERS Safety Report 5698840-4 (Version None)
Quarter: 2008Q2

REPORT INFORMATION
  Report Type: 
  Country: None (occurrence: None)
  Receive Date: 20080408
  Receipt Date: 20060714
  Transmission Date: 20081010
  Serious: No
  Sender: FDA-Public Use
  Company Number: US-BAYER-US-2005-030086

PATIENT
  Age: 79 Year
  Sex: Male
  Weight: 65 kg

DRUGS (8)
  1. ULTRAVIST 300 [Suspect]
     Indication: COMPUTERISED TOMOGRAM
     Dosage: UNIT DOSE: 100 ML
     Route: 042
     Dates: start: 20051228, end: 20051228
  2. ZOLPIDEM [Concomitant]
  3. OMEPRAZOLE [Concomitant]
  4. CASODEX [Concomitant]
  5. ZOLADEX [Concomitant]
  6. HYDROCHLOROTHIAZIDE [Concomitant]
  7. FLOMAX [Concomitant]
  8. CONTRAST MEDIA [Concomitant]
     Route: 048

REACTIONS (5)
  - EYE SWELLING [None]
  - FLUSHING [None]
  - LACRIMATION INCREASED [None]
  - SNEEZING [None]
  - VISION BLURRED [None]
